FAERS Safety Report 8064913-4 (Version None)
Quarter: 2012Q1

REPORT INFORMATION
  Report Type: 
  Country: None (occurrence: None)
  Receive Date: 20120124
  Receipt Date: 20120113
  Transmission Date: 20120608
  Serious: No
  Sender: FDA-Public Use
  Company Number: US-BIOGENIDEC-2012BI001763

PATIENT
  Age: 70 Year
  Sex: Female

DRUGS (2)
  1. TYSABRI [Suspect]
     Indication: MULTIPLE SCLEROSIS
     Route: 042
     Dates: start: 20080229, end: 20081002
  2. TYSABRI [Suspect]
     Route: 042
     Dates: start: 20110429, end: 20111027

REACTIONS (2)
  - PRURITUS [None]
  - LOSS OF CONTROL OF LEGS [None]
